FAERS Safety Report 9448621 (Version 3)
Quarter: 2014Q1

REPORT INFORMATION
  Report Type: Spontaneous
  Country: JP (occurrence: JP)
  Receive Date: 20130808
  Receipt Date: 20140107
  Transmission Date: 20141002
  Serious: Yes (Hospitalization, Other)
  Sender: FDA-Public Use
  Company Number: PHHY2012JP023980

PATIENT
  Age: 74 Year
  Sex: Male

DRUGS (17)
  1. NEORAL [Suspect]
     Indication: RENAL TRANSPLANT
     Dosage: 350 MG, DAILY
     Route: 048
     Dates: start: 20101025, end: 20101027
  2. NEORAL [Suspect]
     Dosage: 250 MG, DAILY
     Route: 048
     Dates: start: 20101102, end: 20101102
  3. NEORAL [Suspect]
     Dosage: 120 MG, DAILY
     Route: 048
     Dates: start: 20101103, end: 20101112
  4. NEORAL [Suspect]
     Dosage: 180 MG, DAILY
     Route: 048
     Dates: start: 20101113, end: 20101113
  5. NEORAL [Suspect]
     Dosage: 250 MG, DAILY
     Route: 048
     Dates: start: 20101114, end: 20101116
  6. NEORAL [Suspect]
     Dosage: 120 MG, DAILY
     Route: 048
     Dates: start: 20101117
  7. SIMULECT [Suspect]
     Indication: RENAL TRANSPLANT
     Dosage: 20 MG, DAILY
     Route: 042
     Dates: start: 20101028, end: 20101028
  8. SIMULECT [Suspect]
     Dosage: 20 MG, DAILY
     Route: 042
     Dates: start: 20101101, end: 20101101
  9. RITUXAN [Suspect]
     Indication: RENAL TRANSPLANT
     Dosage: 200 MG
     Route: 042
     Dates: start: 20101015, end: 20101015
  10. CELLCEPT [Suspect]
     Indication: RENAL TRANSPLANT
     Dosage: 500 MG, DAILY
     Route: 048
     Dates: start: 20100930
  11. MEDROL [Suspect]
     Indication: RENAL TRANSPLANT
     Dosage: 40 MG, DAILY
     Route: 048
     Dates: end: 20101104
  12. MEDROL [Suspect]
     Dosage: 24 MG, DAILY
     Route: 048
     Dates: start: 20101105, end: 20101111
  13. MEDROL [Suspect]
     Dosage: 12 MG, DAILY
     Route: 048
     Dates: start: 20101112, end: 20101118
  14. MEDROL [Suspect]
     Dosage: 8 MG, DAILY
     Route: 048
     Dates: start: 20101119
  15. SANDIMMUN [Concomitant]
     Indication: RENAL TRANSPLANT
     Dosage: 180 MG, DAILY
     Route: 042
     Dates: start: 20101028, end: 20101102
  16. SOL MEDROL [Concomitant]
     Indication: RENAL TRANSPLANT
     Dosage: 500 MG
     Route: 042
     Dates: start: 20101028, end: 20101028
  17. BAKTAR [Concomitant]
     Dosage: 1 DF
     Route: 048
     Dates: start: 20101201

REACTIONS (3)
  - Pelvic haemorrhage [Recovered/Resolved]
  - Cytomegalovirus infection [Recovered/Resolved]
  - Renal failure [Unknown]
